FAERS Safety Report 20015452 (Version 1)
Quarter: 2021Q4

REPORT INFORMATION
  Report Type: Spontaneous
  Country: US (occurrence: None)
  Receive Date: 20211030
  Receipt Date: 20211030
  Transmission Date: 20220303
  Serious: Yes (Disabling, Other)
  Sender: FDA-Public Use
  Company Number: None

PATIENT
  Age: 29 Year
  Weight: 54 kg

DRUGS (1)
  1. CLONAZEPAM [Suspect]
     Active Substance: CLONAZEPAM
     Indication: Anxiety
     Dates: start: 20180501, end: 20210708

REACTIONS (6)
  - Drug intolerance [None]
  - Gastrointestinal disorder [None]
  - Suicidal ideation [None]
  - Withdrawal syndrome [None]
  - Arthralgia [None]
  - Bedridden [None]

NARRATIVE: CASE EVENT DATE: 20191001
